FAERS Safety Report 7070485-3 (Version None)
Quarter: 2010Q4

REPORT INFORMATION
  Report Type: 
  Country: None (occurrence: None)
  Receive Date: 20101027
  Receipt Date: 20101027
  Transmission Date: 20110411
  Serious: No
  Sender: FDA-Public Use
  Company Number: None

PATIENT
  Sex: Female
  Weight: 90.7194 kg

DRUGS (1)
  1. ACCUTANE [Suspect]
     Indication: ACNE CYSTIC
     Dosage: 80 MG EVERY DAY PO
     Route: 048
     Dates: start: 19981201, end: 19990401

REACTIONS (1)
  - RHEUMATOID ARTHRITIS [None]
